FAERS Safety Report 8103403-7 (Version None)
Quarter: 2012Q1

REPORT INFORMATION
  Report Type: 
  Country: None (occurrence: None)
  Receive Date: 20120201
  Receipt Date: 20120131
  Transmission Date: 20120608
  Serious: Yes (Death, Hospitalization)
  Sender: FDA-Public Use
  Company Number: US-AMGEN-USASP2011038610

PATIENT
  Age: 84 Year
  Sex: Female
  Weight: 73.016 kg

DRUGS (2)
  1. ARANESP [Concomitant]
     Indication: ANAEMIA
     Dosage: UNK UNK, Q4WK
     Dates: start: 20110222, end: 20110621
  2. NPLATE [Suspect]
     Indication: THROMBOCYTOPENIA
     Dosage: 78 MUG, UNK
     Route: 058
     Dates: start: 20110621, end: 20110722

REACTIONS (3)
  - MYELODYSPLASTIC SYNDROME [None]
  - PAIN [None]
  - HOSPITALISATION [None]
